FAERS Safety Report 23876868 (Version 2)
Quarter: 2024Q2

REPORT INFORMATION
  Report Type: Spontaneous
  Country: NO (occurrence: NO)
  Receive Date: 20240521
  Receipt Date: 20240528
  Transmission Date: 20240716
  Serious: Yes (Life-Threatening, Hospitalization)
  Sender: FDA-Public Use
  Company Number: NO-HALEON-2174593

PATIENT
  Age: 61 Year
  Sex: Female

DRUGS (5)
  1. VOLTAREN [Interacting]
     Active Substance: DICLOFENAC SODIUM
     Indication: Arthralgia
     Dosage: TIME INTERVAL: 0.33333333 DAYS: 50 MILLIGRAMS (1 TABLET) UP TO 3 TIMES DAILY. USED ON A REGULAR B...
     Route: 048
  2. FLAGYL [Interacting]
     Active Substance: METRONIDAZOLE\METRONIDAZOLE HYDROCHLORIDE
     Indication: Cholecystitis
     Route: 048
     Dates: start: 20240416, end: 20240421
  3. BACTRIM [Interacting]
     Active Substance: SULFAMETHOXAZOLE\TRIMETHOPRIM
     Indication: Cholecystitis
     Dosage: 400MG + 80 MG
     Route: 048
     Dates: start: 20240416, end: 20240422
  4. RAMIPRIL [Interacting]
     Active Substance: RAMIPRIL
     Indication: Product used for unknown indication
     Dosage: 1/2 TABLET DAILY, STRENGTH: 2.5MG
     Route: 048
  5. METOCLOPRAMIDE HYDROCHLORIDE [Interacting]
     Active Substance: METOCLOPRAMIDE HYDROCHLORIDE
     Indication: Product used for unknown indication
     Dosage: TAKEN OUT ON PRESCRIPTION 16/APR/2024
     Route: 048
     Dates: start: 20240416

REACTIONS (8)
  - Hyponatraemia [Recovering/Resolving]
  - Dyspnoea exertional [Recovering/Resolving]
  - Abdominal pain [Recovering/Resolving]
  - Hyperkalaemia [Recovering/Resolving]
  - Fatigue [Recovering/Resolving]
  - Malaise [Recovering/Resolving]
  - Drug interaction [Recovering/Resolving]
  - Muscle spasms [Recovering/Resolving]

NARRATIVE: CASE EVENT DATE: 20240401
